FAERS Safety Report 7058727-1 (Version None)
Quarter: 2010Q4

REPORT INFORMATION
  Report Type: 
  Country: None (occurrence: None)
  Receive Date: 20101022
  Receipt Date: 20101012
  Transmission Date: 20110411
  Serious: Yes (Hospitalization, Other)
  Sender: FDA-Public Use
  Company Number: IN-PFIZER INC-2010130281

PATIENT
  Sex: Male

DRUGS (1)
  1. LYRICA [Suspect]
     Dosage: 750MG
     Route: 048

REACTIONS (4)
  - AMNESIA [None]
  - CONVULSION [None]
  - ELEVATED MOOD [None]
  - SOMNOLENCE [None]
